FAERS Safety Report 12516040 (Version 1)
Quarter: 2016Q2

REPORT INFORMATION
  Report Type: Spontaneous
  Country: DE (occurrence: DE)
  Receive Date: 20160630
  Receipt Date: 20160630
  Transmission Date: 20160815
  Serious: Yes (Other)
  Sender: FDA-Public Use
  Company Number: DE-MYLANLABS-2016M1026457

PATIENT

DRUGS (1)
  1. CABERGOLINE MYLAN [Suspect]
     Active Substance: CABERGOLINE
     Indication: RESTLESS LEGS SYNDROME
     Dosage: 2 MG, QD
     Route: 048

REACTIONS (2)
  - Suppressed lactation [Not Recovered/Not Resolved]
  - Exposure during pregnancy [Unknown]
